FAERS Safety Report 7292571-5 (Version None)
Quarter: 2011Q1

REPORT INFORMATION
  Report Type: 
  Country: None (occurrence: None)
  Receive Date: 20110215
  Receipt Date: 20110207
  Transmission Date: 20110831
  Serious: Yes (Death, Life-Threatening)
  Sender: FDA-Public Use
  Company Number: JP-JNJFOC-20110203119

PATIENT
  Age: 66 Year
  Sex: Female

DRUGS (1)
  1. FINIBAX [Suspect]
     Indication: PNEUMONIA
     Route: 041

REACTIONS (2)
  - BONE MARROW FAILURE [None]
  - PLATELET COUNT DECREASED [None]
